FAERS Safety Report 19383182 (Version 2)
Quarter: 2021Q2

REPORT INFORMATION
  Report Type: Report from Study
  Country: AT (occurrence: AT)
  Receive Date: 20210607
  Receipt Date: 20210618
  Transmission Date: 20210717
  Serious: Yes (Hospitalization)
  Sender: FDA-Public Use
  Company Number: AT-BRISTOL-MYERS SQUIBB COMPANY-BMS-2021-051934

PATIENT
  Age: 69 Year
  Sex: Female
  Weight: 80 kg

DRUGS (10)
  1. DEXAMETHASONE. [Suspect]
     Active Substance: DEXAMETHASONE
     Indication: PLASMA CELL MYELOMA
     Dosage: 8 MILLIGRAM DAILY DOSE
     Route: 042
     Dates: start: 20210427, end: 20210521
  2. DEXAMETHASONE. [Suspect]
     Active Substance: DEXAMETHASONE
     Dosage: 8 MILLIGRAM DAILY DOSE
     Route: 042
     Dates: start: 20210615, end: 20210615
  3. DEXAMETHASONE. [Suspect]
     Active Substance: DEXAMETHASONE
     Dosage: 28 MG DAILY DOSE
     Route: 048
     Dates: start: 20210615, end: 20210615
  4. LENALIDOMIDE [Suspect]
     Active Substance: LENALIDOMIDE
     Dosage: 25 MILLIGRAM DAILY DOSE
     Route: 048
     Dates: start: 20210615, end: 20210615
  5. CARFILZOMIB [Suspect]
     Active Substance: CARFILZOMIB
     Dosage: 36.26 MILLIGRAM DAILY DOSE
     Route: 042
     Dates: start: 20210615, end: 20210615
  6. LENALIDOMIDE [Suspect]
     Active Substance: LENALIDOMIDE
     Indication: PLASMA CELL MYELOMA
     Dosage: 25 MILLIGRAM DAILY DOSE
     Route: 048
     Dates: start: 20210427, end: 20210521
  7. DEXAMETHASONE. [Suspect]
     Active Substance: DEXAMETHASONE
     Indication: PLASMA CELL MYELOMA
     Dosage: 28 MG DAILY DOSE
     Route: 048
     Dates: start: 20210427, end: 20210521
  8. CARFILZOMIB [Suspect]
     Active Substance: CARFILZOMIB
     Indication: PLASMA CELL MYELOMA
     Dosage: 36.26 MILLIGRAM DAILY DOSE
     Route: 042
     Dates: start: 20210427, end: 20210521
  9. ELOTUZUMAB. [Suspect]
     Active Substance: ELOTUZUMAB
     Indication: PLASMA CELL MYELOMA
     Dosage: 757.66 MILLIGRAM DAILY DOSE
     Route: 042
     Dates: start: 20210427, end: 20210521
  10. ELOTUZUMAB. [Suspect]
     Active Substance: ELOTUZUMAB
     Dosage: 757.66 MILLIGRAM DAILY DOSE
     Route: 042
     Dates: start: 20210615, end: 20210615

REACTIONS (1)
  - Rash [Recovered/Resolved]

NARRATIVE: CASE EVENT DATE: 20210521
